FAERS Safety Report 11186316 (Version 10)
Quarter: 2018Q2

REPORT INFORMATION
  Report Type: Spontaneous
  Country: DE (occurrence: DE)
  Receive Date: 20150612
  Receipt Date: 20180418
  Transmission Date: 20180711
  Serious: Yes (Other)
  Sender: FDA-Public Use
  Company Number: PHHY2015DE068443

PATIENT
  Age: 56 Year
  Sex: Male

DRUGS (9)
  1. ADALIMUMAB [Suspect]
     Active Substance: ADALIMUMAB
     Indication: PSORIASIS
     Route: 065
  2. HUMIRA [Suspect]
     Active Substance: ADALIMUMAB
     Indication: PSORIASIS
     Route: 065
  3. CALCIPOTRIOL [Concomitant]
     Active Substance: CALCIPOTRIENE
     Indication: PRODUCT USED FOR UNKNOWN INDICATION
     Route: 061
  4. METHOTREXATE. [Suspect]
     Active Substance: METHOTREXATE
     Indication: MALIGNANT MELANOMA
     Route: 065
  5. ENBREL [Suspect]
     Active Substance: ETANERCEPT
     Indication: PSORIASIS
     Dosage: UNK
     Route: 065
  6. FUMADERM [Suspect]
     Active Substance: CALCIUM MONOETHYLFUMARATE\DIMETHYL FUMARATE\MAGNESIUM MONOETHYLFUMARATE\ZINC MONOETHYLFUMARATE
     Indication: PRODUCT USED FOR UNKNOWN INDICATION
     Dosage: UNK
     Route: 065
     Dates: start: 2001, end: 2005
  7. CICLOSPORIN [Suspect]
     Active Substance: CYCLOSPORINE
     Indication: MALIGNANT MELANOMA
     Route: 065
  8. REMICADE [Suspect]
     Active Substance: INFLIXIMAB
     Indication: PSORIASIS
     Route: 065
  9. NEOTIGASON [Suspect]
     Active Substance: ACITRETIN
     Indication: PSORIASIS
     Route: 065

REACTIONS (9)
  - Blood pressure increased [Unknown]
  - Therapy non-responder [Recovered/Resolved]
  - Keratoacanthoma [Unknown]
  - Drug effect incomplete [Unknown]
  - Hyperkeratosis [Unknown]
  - Malignant melanoma [Recovered/Resolved]
  - Superficial spreading melanoma stage unspecified [Recovered/Resolved]
  - Drug ineffective [Unknown]
  - Malignant melanoma stage I [Recovered/Resolved]

NARRATIVE: CASE EVENT DATE: 200805
